FAERS Safety Report 7601654-9 (Version None)
Quarter: 2011Q2

REPORT INFORMATION
  Report Type: 
  Country: None (occurrence: None)
  Receive Date: 20110630
  Receipt Date: 20110613
  Transmission Date: 20111010
  Serious: Yes (Other)
  Sender: FDA-Public Use
  Company Number: 20110466

PATIENT
  Sex: Female

DRUGS (1)
  1. KETOROLAC TROMETHAMINE [Suspect]
     Indication: COMPLEX REGIONAL PAIN SYNDROME
     Dosage: 3 TO 4 DOSES OVER ABOUT 3 DAYS NASAL
     Route: 045
     Dates: start: 20110610, end: 20110613

REACTIONS (3)
  - RHINALGIA [None]
  - OEDEMA PERIPHERAL [None]
  - RHINORRHOEA [None]
